FAERS Safety Report 6749516-3 (Version None)
Quarter: 2010Q2

REPORT INFORMATION
  Report Type: 
  Country: None (occurrence: None)
  Receive Date: 20100527
  Receipt Date: 20100518
  Transmission Date: 20101027
  Serious: Yes (Hospitalization)
  Sender: FDA-Public Use
  Company Number: 008386

PATIENT
  Sex: Female
  Weight: 102 kg

DRUGS (7)
  1. CERTOLIZUMAB PEGOL            (CERTOLIZUMAB PEGOL) [Suspect]
     Indication: RHEUMATOID ARTHRITIS
     Dosage: (400 MG 1X/2 WEEKS, CDP870-014 SUBCUTANEOUS), (400 MG 1X/MONTH SUBCUTANEOUS)
     Route: 058
     Dates: start: 20030317, end: 20030610
  2. CERTOLIZUMAB PEGOL            (CERTOLIZUMAB PEGOL) [Suspect]
     Indication: RHEUMATOID ARTHRITIS
     Dosage: (400 MG 1X/2 WEEKS, CDP870-014 SUBCUTANEOUS), (400 MG 1X/MONTH SUBCUTANEOUS)
     Route: 058
     Dates: start: 20030722, end: 20100126
  3. PREDNISOLONE [Concomitant]
  4. TILIDIN [Concomitant]
  5. METOPROLOL TARTRATE [Concomitant]
  6. MAXALT /01406501/ [Concomitant]
  7. NOVAMINSULFON [Concomitant]

REACTIONS (5)
  - AORTIC VALVE SCLEROSIS [None]
  - HIATUS HERNIA [None]
  - PNEUMONIA [None]
  - PULMONARY EMBOLISM [None]
  - TRICUSPID VALVE INCOMPETENCE [None]
